FAERS Safety Report 7439198-X (Version None)
Quarter: 2011Q2

REPORT INFORMATION
  Report Type: 
  Country: None (occurrence: None)
  Receive Date: 20110427
  Receipt Date: 20110420
  Transmission Date: 20111010
  Serious: Yes (Other)
  Sender: FDA-Public Use
  Company Number: US-JNJFOC-20110302897

PATIENT
  Sex: Female
  Weight: 57.15 kg

DRUGS (9)
  1. SIMPONI [Suspect]
     Route: 058
  2. NAPROXEN [Concomitant]
     Indication: RHEUMATOID ARTHRITIS
  3. FOLATE [Concomitant]
  4. PROTONIX [Concomitant]
     Indication: GASTROOESOPHAGEAL REFLUX DISEASE
  5. SIMPONI [Suspect]
     Indication: RHEUMATOID ARTHRITIS
     Route: 058
  6. METHOTREXATE [Concomitant]
     Indication: RHEUMATOID ARTHRITIS
  7. BENICAR [Concomitant]
     Indication: HYPERTENSION
  8. SIMPONI [Suspect]
     Route: 058
  9. NAPROXEN [Concomitant]
     Indication: OSTEOARTHRITIS

REACTIONS (2)
  - CAROTID ARTERY OCCLUSION [None]
  - GLAUCOMA [None]
